FAERS Safety Report 4317868-X (Version None)
Quarter: 2004Q1

REPORT INFORMATION
  Report Type: 
  Country: None (occurrence: None)
  Receive Date: 20040316
  Receipt Date: 20021030
  Transmission Date: 20041129
  Serious: Yes (Hospitalization, Other)
  Sender: FDA-Public Use
  Company Number: WAES 0210USA02981

PATIENT
  Age: 84 Year
  Sex: Female
  Weight: 56 kg

DRUGS (19)
  1. [THERAPY UNSPECIFIED] [Concomitant]
     Indication: DEPRESSION
     Dates: start: 20020101, end: 20030401
  2. TYLENOL (CAPLET) [Concomitant]
     Indication: PAIN
  3. VICODIN [Concomitant]
  4. DARVOCET-N 100 [Concomitant]
  5. AMITRIPTYLINE HYDROCHLORIDE [Concomitant]
     Indication: INSOMNIA
     Route: 048
  6. ASPIRIN [Concomitant]
     Indication: ANALGESIC EFFECT
  7. ASPIRIN [Concomitant]
     Indication: OSTEOARTHRITIS
  8. BUSPIRONE HYDROCHLORIDE [Concomitant]
  9. VALIUM [Concomitant]
     Indication: DEPRESSION
  10. ARICEPT [Concomitant]
     Route: 048
  11. PREMARIN [Concomitant]
     Route: 048
     Dates: start: 20010601, end: 20030101
  12. FLUOXETINE [Concomitant]
  13. PROZAC [Concomitant]
     Indication: DEPRESSION
     Dates: start: 20020101, end: 20030401
  14. LORAZEPAM [Concomitant]
  15. METOCLOPRAMIDE [Concomitant]
  16. VIOXX [Suspect]
     Indication: ARTHRITIS
     Route: 048
     Dates: start: 20020101, end: 20020601
  17. VIOXX [Suspect]
     Route: 048
     Dates: start: 20020905, end: 20020901
  18. VIOXX [Suspect]
     Route: 048
     Dates: start: 20020101, end: 20020101
  19. AMBIEN [Concomitant]

REACTIONS (53)
  - ABDOMINAL DISTENSION [None]
  - ACUTE PULMONARY OEDEMA [None]
  - AGITATION [None]
  - ANAEMIA [None]
  - ANXIETY [None]
  - ATHEROSCLEROSIS [None]
  - BACK INJURY [None]
  - BLOOD LACTATE DEHYDROGENASE INCREASED [None]
  - CARDIAC FAILURE CONGESTIVE [None]
  - CATARACT [None]
  - CEREBRAL ATROPHY [None]
  - CERVICAL MYELOPATHY [None]
  - CHOLELITHIASIS [None]
  - CONTUSION [None]
  - CORONARY ARTERY DISEASE [None]
  - DEHYDRATION [None]
  - DEPRESSION [None]
  - DILATATION ATRIAL [None]
  - DIPLOPIA [None]
  - DRUG INTOLERANCE [None]
  - ELECTROCARDIOGRAM QT PROLONGED [None]
  - FALL [None]
  - GASTROENTERITIS [None]
  - GASTROOESOPHAGEAL REFLUX DISEASE [None]
  - HALLUCINATION [None]
  - HEART RATE INCREASED [None]
  - HIATUS HERNIA [None]
  - HYPERTENSION [None]
  - INSOMNIA [None]
  - INTERVERTEBRAL DISC DEGENERATION [None]
  - KYPHOSIS [None]
  - LACERATION [None]
  - LACUNAR INFARCTION [None]
  - MITRAL VALVE INCOMPETENCE [None]
  - NAUSEA [None]
  - NUCLEAR MAGNETIC RESONANCE IMAGING ABNORMAL [None]
  - OEDEMA PERIPHERAL [None]
  - PAIN [None]
  - POLLAKIURIA [None]
  - PSYCHOTIC DISORDER [None]
  - PULMONARY HYPERTENSION [None]
  - RALES [None]
  - RENAL FAILURE [None]
  - RESPIRATORY FAILURE [None]
  - ROTATOR CUFF SYNDROME [None]
  - SPINAL COMPRESSION FRACTURE [None]
  - SUICIDAL IDEATION [None]
  - TREATMENT NONCOMPLIANCE [None]
  - TRICUSPID VALVE INCOMPETENCE [None]
  - URINARY TRACT INFECTION [None]
  - VENOUS PRESSURE JUGULAR INCREASED [None]
  - VENTRICULAR HYPERTROPHY [None]
  - VOMITING [None]
